FAERS Safety Report 24184956 (Version 1)
Quarter: 2024Q3

REPORT INFORMATION
  Report Type: Spontaneous
  Country: US (occurrence: None)
  Receive Date: 20240807
  Receipt Date: 20240807
  Transmission Date: 20241016
  Serious: Yes (Other)
  Sender: Public
  Company Number: None

PATIENT
  Age: 65 Year
  Sex: Male
  Weight: 74.84 kg

DRUGS (5)
  1. SPRAVATO [Suspect]
     Active Substance: ESKETAMINE
     Indication: Major depression
     Dosage: FREQUENCY : ONCE;?
     Route: 011
     Dates: start: 20240806
  2. RISPERIODONE [Concomitant]
  3. MIRTAZIPINE [Concomitant]
  4. PROZAC [Concomitant]
  5. CYMBALTA [Concomitant]

REACTIONS (2)
  - Hypoaesthesia [None]
  - Hypoaesthesia [None]
